FAERS Safety Report 16194260 (Version 1)
Quarter: 2019Q2

REPORT INFORMATION
  Report Type: Spontaneous
  Country: GB (occurrence: GB)
  Receive Date: 20190414
  Receipt Date: 20190414
  Transmission Date: 20190711
  Serious: Yes (Disabling, Other)
  Sender: FDA-Public Use
  Company Number: GB-DEXPHARM-20190243

PATIENT
  Age: 60 Year
  Sex: Male
  Weight: 105 kg

DRUGS (6)
  1. OMEPRAZOLE. [Suspect]
     Active Substance: OMEPRAZOLE
  2. PREGABALIN. [Concomitant]
     Active Substance: PREGABALIN
     Dates: start: 20190221
  3. CANDESARTAN. [Concomitant]
     Active Substance: CANDESARTAN
     Dates: start: 20190101
  4. RANITIDINE. [Concomitant]
     Active Substance: RANITIDINE
     Dates: start: 20190315
  5. CEFALEXIN [Concomitant]
     Active Substance: CEPHALEXIN
     Dates: start: 20190120
  6. CLOPIDOGREL [Suspect]
     Active Substance: CLOPIDOGREL BISULFATE
     Dates: start: 20190221

REACTIONS (1)
  - Drug interaction [Unknown]
